FAERS Safety Report 6981185-X (Version None)
Quarter: 2010Q3

REPORT INFORMATION
  Report Type: 
  Country: None (occurrence: None)
  Receive Date: 20100914
  Receipt Date: 20100902
  Transmission Date: 20110219
  Serious: Yes (Other)
  Sender: FDA-Public Use
  Company Number: US-PFIZER INC-2010079658

PATIENT
  Sex: Male

DRUGS (2)
  1. CHANTIX [Suspect]
     Indication: SMOKING CESSATION THERAPY
     Dosage: UNK
     Dates: start: 20070701, end: 20070101
  2. SIMVASTATIN [Concomitant]
     Indication: BLOOD CHOLESTEROL INCREASED
     Dosage: UNK
     Dates: start: 20050101

REACTIONS (7)
  - ANXIETY [None]
  - DEPRESSION [None]
  - MENTAL DISORDER [None]
  - MOOD SWINGS [None]
  - NIGHTMARE [None]
  - PIGMENTATION DISORDER [None]
  - SUICIDAL IDEATION [None]
